FAERS Safety Report 9398563 (Version 2)
Quarter: 2013Q3

REPORT INFORMATION
  Report Type: Spontaneous
  Country: US (occurrence: US)
  Receive Date: 20130712
  Receipt Date: 20130920
  Transmission Date: 20140515
  Serious: Yes (Other)
  Sender: FDA-Public Use
  Company Number: US-ELI_LILLY_AND_COMPANY-US201307001449

PATIENT
  Sex: Female

DRUGS (2)
  1. HUMALOG 25% LISPRO, 75% NPL [Suspect]
     Indication: DIABETES MELLITUS
     Dosage: 12 U, EACH MORNING
  2. HUMALOG 25% LISPRO, 75% NPL [Suspect]
     Dosage: 10 U, PRN

REACTIONS (7)
  - Liver disorder [Unknown]
  - Hepatitis C [Unknown]
  - VIIth nerve paralysis [Unknown]
  - Diabetes mellitus inadequate control [Unknown]
  - Hypertension [Unknown]
  - Anxiety [Unknown]
  - Panic attack [Unknown]
